FAERS Safety Report 10561203 (Version 2)
Quarter: 2014Q4

REPORT INFORMATION
  Report Type: Spontaneous
  Country: US (occurrence: US)
  Receive Date: 20141103
  Receipt Date: 20141111
  Transmission Date: 20150529
  Serious: Yes (Hospitalization, Other)
  Sender: FDA-Public Use
  Company Number: US-TEVA-518701USA

PATIENT
  Age: 45 Year
  Sex: Male

DRUGS (1)
  1. COPAXONE [Suspect]
     Active Substance: GLATIRAMER ACETATE
     Indication: MULTIPLE SCLEROSIS
     Dates: start: 20120712, end: 20121001

REACTIONS (2)
  - Hepatic failure [Unknown]
  - Jaundice [Unknown]

NARRATIVE: CASE EVENT DATE: 201210
